FAERS Safety Report 21320832 (Version 2)
Quarter: 2022Q3

REPORT INFORMATION
  Report Type: Spontaneous
  Country: BY (occurrence: BY)
  Receive Date: 20220912
  Receipt Date: 20220912
  Transmission Date: 20221027
  Serious: Yes (Disabling)
  Sender: FDA-Public Use
  Company Number: BY-JNJFOC-20200407295

PATIENT
  Age: 52 Year
  Sex: Male

DRUGS (20)
  1. SIRTURO [Suspect]
     Active Substance: BEDAQUILINE FUMARATE
     Indication: Tuberculosis
     Route: 048
     Dates: start: 20160915, end: 20180915
  2. CLOFAZIMINE [Suspect]
     Active Substance: CLOFAZIMINE
     Indication: Tuberculosis
     Route: 048
     Dates: start: 20160915, end: 20180915
  3. LINEZOLID [Suspect]
     Active Substance: LINEZOLID
     Indication: Tuberculosis
     Route: 048
     Dates: start: 20160915, end: 20180915
  4. PRIMAXIN IV [Suspect]
     Active Substance: CILASTATIN SODIUM\IMIPENEM
     Indication: Tuberculosis
     Dates: start: 20160915, end: 20180119
  5. AMOXICILLIN AND CLAVULANATE POTASSIUM [Suspect]
     Active Substance: AMOXICILLIN\CLAVULANATE POTASSIUM
     Indication: Tuberculosis
     Route: 048
     Dates: start: 20160915, end: 20180119
  6. FAMOTIDINE [Concomitant]
     Active Substance: FAMOTIDINE
     Indication: Product used for unknown indication
     Route: 048
     Dates: start: 20170905, end: 20180315
  7. ESSENTICAPSUM [Concomitant]
     Indication: Product used for unknown indication
     Route: 048
     Dates: start: 20170905, end: 20180915
  8. PYRIDOXINE [Concomitant]
     Active Substance: PYRIDOXINE
     Indication: Product used for unknown indication
     Route: 048
     Dates: start: 20170905, end: 20180406
  9. PYRIDOXINE [Concomitant]
     Active Substance: PYRIDOXINE
     Route: 048
     Dates: start: 20180406, end: 20180915
  10. ZOPICLONE [Concomitant]
     Active Substance: ZOPICLONE
     Indication: Product used for unknown indication
     Route: 048
     Dates: start: 20170928, end: 20171009
  11. ZOPICLONE [Concomitant]
     Active Substance: ZOPICLONE
     Route: 048
     Dates: start: 20170928, end: 20171009
  12. LISINOPRIL [Concomitant]
     Active Substance: LISINOPRIL
     Indication: Product used for unknown indication
     Route: 048
     Dates: start: 20171005, end: 20171009
  13. LISINOPRIL [Concomitant]
     Active Substance: LISINOPRIL
     Route: 048
     Dates: start: 20171009, end: 20171122
  14. LISINOPRIL [Concomitant]
     Active Substance: LISINOPRIL
     Route: 048
     Dates: start: 20180110, end: 20180915
  15. BETAHISTANE [Concomitant]
     Indication: Product used for unknown indication
     Route: 048
     Dates: start: 20171009, end: 20171113
  16. INDAPAMIDE [Concomitant]
     Active Substance: INDAPAMIDE
     Indication: Product used for unknown indication
     Route: 048
     Dates: start: 20171009, end: 20180915
  17. AMLODIPINE [Concomitant]
     Active Substance: AMLODIPINE BESYLATE
     Indication: Product used for unknown indication
     Route: 048
     Dates: start: 20171122, end: 20180915
  18. OMEPRAZOLE [Concomitant]
     Active Substance: OMEPRAZOLE
     Indication: Product used for unknown indication
     Route: 048
     Dates: start: 20180315, end: 20180915
  19. PANCREATINE MYLAN [Concomitant]
     Indication: Product used for unknown indication
     Route: 048
     Dates: start: 20180316, end: 20180711
  20. DROTAVERINE [Concomitant]
     Active Substance: DROTAVERINE
     Indication: Product used for unknown indication

REACTIONS (3)
  - Vestibular neuronitis [Not Recovered/Not Resolved]
  - Off label use [Unknown]
  - Intentional product use issue [Unknown]

NARRATIVE: CASE EVENT DATE: 20171006
